FAERS Safety Report 9095885 (Version 4)
Quarter: 2013Q4

REPORT INFORMATION
  Report Type: Spontaneous
  Country: US (occurrence: US)
  Receive Date: 20130220
  Receipt Date: 20131219
  Transmission Date: 20140711
  Serious: Yes (Hospitalization, Other)
  Sender: FDA-Public Use
  Company Number: US-009507513-1302USA009138

PATIENT
  Sex: Female
  Weight: 44.99 kg

DRUGS (8)
  1. FOSAMAX [Suspect]
     Indication: OSTEOPOROSIS
     Dosage: 10 MG, QD
     Route: 048
     Dates: start: 1995, end: 200110
  2. FOSAMAX [Suspect]
     Dosage: 70 MG, QW
     Route: 048
     Dates: start: 200110, end: 20050830
  3. FOSAMAX [Suspect]
     Dosage: 70 MG, QOW
     Route: 048
  4. FOSAMAX PLUS D [Suspect]
     Indication: OSTEOPOROSIS
     Dosage: 70 MG, QW
     Route: 048
     Dates: start: 20050830, end: 201106
  5. VITAMINS (UNSPECIFIED) [Concomitant]
     Dosage: 1 DF, QD
     Route: 048
     Dates: start: 1974
  6. HYDROCORTISONE [Concomitant]
     Indication: ADDISON^S DISEASE
     Dosage: 25 MG, QD
     Dates: start: 1974
  7. HYDROCORTISONE [Concomitant]
     Dosage: 15 MG IN AM, 10 MG AT NOON AND 5 MG AT HS
  8. CORTEF [Concomitant]
     Indication: ADDISON^S DISEASE
     Dosage: 25 MG, QD

REACTIONS (30)
  - Femur fracture [Unknown]
  - Intramedullary rod insertion [Unknown]
  - Internal fixation of fracture [Unknown]
  - Femur fracture [Unknown]
  - Intramedullary rod insertion [Unknown]
  - Knee arthroplasty [Unknown]
  - Cellulitis [Unknown]
  - Bone graft [Unknown]
  - Pubis fracture [Unknown]
  - Adverse event [Unknown]
  - Chest pain [Unknown]
  - Sinusitis [Unknown]
  - Mitral valve prolapse [Unknown]
  - Bunion [Unknown]
  - Osteotomy [Unknown]
  - Electrocardiogram QT prolonged [Unknown]
  - Anaemia postoperative [Unknown]
  - Hypokalaemia [Recovering/Resolving]
  - Inappropriate schedule of drug administration [Unknown]
  - Musculoskeletal disorder [Unknown]
  - Hypophosphatasia [Unknown]
  - Osteopenia [Unknown]
  - Osteoarthritis [Unknown]
  - Hypertension [Unknown]
  - Hypokalaemia [Unknown]
  - Electrocardiogram T wave abnormal [Unknown]
  - Adverse event [Not Recovered/Not Resolved]
  - Constipation [Not Recovered/Not Resolved]
  - Pain in extremity [Unknown]
  - Back pain [Not Recovered/Not Resolved]
